FAERS Safety Report 8173682-9 (Version None)
Quarter: 2012Q1

REPORT INFORMATION
  Report Type: 
  Country: None (occurrence: None)
  Receive Date: 20120224
  Receipt Date: 20120215
  Transmission Date: 20120608
  Serious: Yes (Disabling, Other)
  Sender: FDA-Public Use
  Company Number: ACO_28600_2011

PATIENT
  Age: 46 Year
  Sex: Female
  Weight: 54.4 kg

DRUGS (1)
  1. AMPYRA [Suspect]
     Indication: GAIT DISTURBANCE
     Dosage: 10 MG, Q 12 HRS, ORAL
     Route: 048
     Dates: start: 20100522, end: 20110901

REACTIONS (5)
  - MULTIPLE SCLEROSIS RELAPSE [None]
  - FALL [None]
  - ACTIVITIES OF DAILY LIVING IMPAIRED [None]
  - PYREXIA [None]
  - GAIT DISTURBANCE [None]
